FAERS Safety Report 13038046 (Version 1)
Quarter: 2016Q4

REPORT INFORMATION
  Report Type: Spontaneous
  Country: US (occurrence: US)
  Receive Date: 20161213
  Receipt Date: 20161213
  Transmission Date: 20170207
  Serious: Yes (Death)
  Sender: FDA-Public Use
  Company Number: None

PATIENT
  Age: 71 Year
  Sex: Male
  Weight: 63.11 kg

DRUGS (1)
  1. DIOCTO [Suspect]
     Active Substance: DOCUSATE SODIUM
     Indication: CONSTIPATION
     Dosage: INTO FEEDING TUBE AS NEEDED 1X DAY-BEDTIME

REACTIONS (4)
  - Blood urine present [None]
  - Secretion discharge [None]
  - Chronic respiratory failure [None]
  - Product quality issue [None]

NARRATIVE: CASE EVENT DATE: 20160901
